FAERS Safety Report 23137222 (Version 1)
Quarter: 2023Q4

REPORT INFORMATION
  Report Type: Spontaneous
  Country: US (occurrence: US)
  Receive Date: 20231102
  Receipt Date: 20231102
  Transmission Date: 20240110
  Serious: No
  Sender: FDA-Public Use
  Company Number: US-drreddys-SPO/USA/23/0178129

PATIENT
  Age: 6 Decade
  Sex: Female

DRUGS (3)
  1. DOXYCYCLINE [Suspect]
     Active Substance: DOXYCYCLINE
     Indication: Meibomian gland dysfunction
     Route: 048
     Dates: start: 2022
  2. PROGESTERONE [Concomitant]
     Active Substance: PROGESTERONE
     Indication: Uterine leiomyoma
  3. CYCLOSPORINE [Concomitant]
     Active Substance: CYCLOSPORINE
     Indication: Antiinflammatory therapy
     Dosage: ANTI-INFLAMMATORY EYEDROP
     Dates: start: 2021

REACTIONS (1)
  - Gastrointestinal disorder [Unknown]

NARRATIVE: CASE EVENT DATE: 20220101
